FAERS Safety Report 15300094 (Version 2)
Quarter: 2018Q3

REPORT INFORMATION
  Report Type: Spontaneous
  Country: US (occurrence: US)
  Receive Date: 20180821
  Receipt Date: 20180831
  Transmission Date: 20181010
  Serious: No
  Sender: FDA-Public Use
  Company Number: US-PFIZER INC-2018018071

PATIENT
  Age: 57 Year
  Sex: Male
  Weight: 150 kg

DRUGS (16)
  1. LYRICA [Suspect]
     Active Substance: PREGABALIN
     Dosage: 50 MG, UNK
  2. LORZONE [Concomitant]
     Active Substance: CHLORZOXAZONE
     Indication: RESTLESSNESS
  3. SOTALOL HYDROCHLORIDE. [Concomitant]
     Active Substance: SOTALOL HYDROCHLORIDE
     Indication: HYPERTENSION
     Dosage: 120 MG, 2X/DAY (120MG CAPSULE BY MOUTH ONE IN THE MORNING AND ONE IN THE EVENING)
     Route: 048
  4. LYRICA [Suspect]
     Active Substance: PREGABALIN
     Indication: NEURALGIA
     Dosage: UNK
     Dates: start: 201711
  5. DILTIAZEM HCL [Concomitant]
     Active Substance: DILTIAZEM HYDROCHLORIDE
     Indication: HYPERTENSION
     Dosage: 240 MG, 1X/DAY (240MG CAPSULE ONCE DAILY)
  6. LYRICA [Suspect]
     Active Substance: PREGABALIN
     Dosage: 50 MG, 2X/DAY
     Route: 048
     Dates: start: 2018
  7. ASPIRIN. [Concomitant]
     Active Substance: ASPIRIN
     Indication: BLOOD DISORDER
     Dosage: 81 MG, 2X/DAY (81MG TABLET ONE IN THE MORNING AND ONE IN THE EVENING BY MOUTH)
     Route: 048
  8. CELECOXIB. [Concomitant]
     Active Substance: CELECOXIB
     Indication: ARTHROPATHY
     Dosage: 200 MG, 1X/DAY (200MG CAPSULE ONCE DAILY BY MOUTH)
     Route: 048
  9. CELECOXIB. [Concomitant]
     Active Substance: CELECOXIB
     Indication: ARTHRITIS
  10. LORZONE [Concomitant]
     Active Substance: CHLORZOXAZONE
     Indication: MUSCLE DISORDER
     Dosage: 750 MG, UNK (750MG TABLET BY MOUTH THREE TIMES A DAY AS NEEDED)
     Route: 048
  11. LYRICA [Suspect]
     Active Substance: PREGABALIN
     Indication: NERVE INJURY
     Dosage: 50 MG, 1X/DAY (50MG CAPSULE BY MOUTH ONCE IN THE EVENING)
     Route: 048
     Dates: start: 20180111
  12. TRIAMTERENE. [Concomitant]
     Active Substance: TRIAMTERENE
     Indication: HYPERTENSION
     Dosage: 25 MG, 2X/DAY (25MG TABLET BY MOUTH ONE IN THE MORNING AND ONE IN THE EVENING)
     Route: 048
  13. OXYCODONE [Concomitant]
     Active Substance: OXYCODONE
     Indication: PAIN
     Dosage: 325 MG, AS NEEDED (325MG TABLET BY MOUTH AS NEEDED)
     Route: 048
  14. IRBESARTAN. [Concomitant]
     Active Substance: IRBESARTAN
     Indication: BLOOD PRESSURE MEASUREMENT
     Dosage: 300 MG, 1X/DAY (300MG TABLET BY MOUTH ONCE DAILY)
     Route: 048
  15. CARVEDILOL. [Concomitant]
     Active Substance: CARVEDILOL
     Indication: HYPERTENSION
     Dosage: 25 MG, 2X/DAY (25MG TABLET ONCE IN THE MORNING AND ONCE IN THE EVENING)
     Route: 048
  16. TRAMADOL. [Concomitant]
     Active Substance: TRAMADOL
     Indication: PAIN
     Dosage: 50 MG, AS NEEDED (50MG TABLET AS NEEDED)

REACTIONS (1)
  - Drug effect incomplete [Unknown]
